FAERS Safety Report 6678842-1 (Version None)
Quarter: 2010Q2

REPORT INFORMATION
  Report Type: 
  Country: None (occurrence: None)
  Receive Date: 20100412
  Receipt Date: 20100412
  Transmission Date: 20101027
  Serious: Yes (Hospitalization)
  Sender: FDA-Public Use
  Company Number: None

PATIENT
  Sex: Female
  Weight: 52 kg

DRUGS (5)
  1. ABRAXANE [Suspect]
     Indication: PANCREATIC CARCINOMA
     Dosage: 161 MG D1, D8, D15/CYCLE 042
     Dates: start: 20100218, end: 20100318
  2. VANDETANIB [Suspect]
     Indication: PANCREATIC CARCINOMA
     Dosage: 300 MG QD X 28 DAYS 047
     Dates: start: 20100218, end: 20100320
  3. LOPERAMIDE [Concomitant]
  4. LOMITRIL [Concomitant]
  5. DILAUDID [Concomitant]

REACTIONS (5)
  - DEHYDRATION [None]
  - DIARRHOEA [None]
  - FAILURE TO THRIVE [None]
  - KLEBSIELLA INFECTION [None]
  - URINARY TRACT INFECTION [None]
